FAERS Safety Report 6793968-X (Version None)
Quarter: 2010Q2

REPORT INFORMATION
  Report Type: 
  Country: None (occurrence: None)
  Receive Date: 20100624
  Receipt Date: 20070921
  Transmission Date: 20101027
  Serious: No
  Sender: FDA-Public Use
  Company Number: US-PFIZER INC-ENC200700166

PATIENT
  Age: 50 Year
  Sex: Male

DRUGS (3)
  1. ARGATROBAN [Suspect]
     Indication: THROMBOSIS
     Dosage: 2 MG/KG/MIN,FREQUENCY:  UNK
     Route: 042
     Dates: start: 20070914, end: 20070901
  2. ARGATROBAN [Suspect]
     Dosage: 2 MCG/KG/MIN,FREQUENCY:  UNK
     Route: 042
     Dates: start: 20070918
  3. WARFARIN SODIUM [Concomitant]

REACTIONS (1)
  - DRUG INEFFECTIVE [None]
